FAERS Safety Report 14591079 (Version 1)
Quarter: 2018Q1

REPORT INFORMATION
  Report Type: Report from Study
  Country: AU (occurrence: AU)
  Receive Date: 20180302
  Receipt Date: 20180302
  Transmission Date: 20180509
  Serious: Yes (Other)
  Sender: FDA-Public Use
  Company Number: AU-TOLMAR, INC.-2018AU002270

PATIENT

DRUGS (1)
  1. ELIGARD [Suspect]
     Active Substance: LEUPROLIDE ACETATE
     Indication: PROSTATE CANCER
     Dosage: 7.5 MG, MONTHLY
     Route: 065
     Dates: start: 20180223

REACTIONS (7)
  - Metastases to pelvis [Not Recovered/Not Resolved]
  - Asthenia [Not Recovered/Not Resolved]
  - Groin pain [Not Recovered/Not Resolved]
  - Pelvic pain [Not Recovered/Not Resolved]
  - Breast pain [Not Recovered/Not Resolved]
  - Metastases to bone [Not Recovered/Not Resolved]
  - Fatigue [Not Recovered/Not Resolved]
